FAERS Safety Report 12784300 (Version 1)
Quarter: 2016Q3

REPORT INFORMATION
  Report Type: Spontaneous
  Country: GB (occurrence: GB)
  Receive Date: 20160927
  Receipt Date: 20160927
  Transmission Date: 20161109
  Serious: Yes (Other)
  Sender: FDA-Public Use
  Company Number: GB-BEH-200308762

PATIENT
  Age: 81 Year
  Sex: Female

DRUGS (2)
  1. STREPTOKINASE [Suspect]
     Active Substance: STREPTOKINASE
     Indication: MYOCARDIAL INFARCTION
     Dosage: DAILY DOSE QUANTITY: 1.5, DAILY DOSE UNIT: MU
     Route: 042
     Dates: start: 20021218, end: 20021218
  2. ATENOLOL. [Concomitant]
     Active Substance: ATENOLOL
     Indication: HYPERTENSION
     Dosage: DAILY DOSE QUANTITY: 50, DAILY DOSE UNIT: MG
     Route: 048
     Dates: start: 20020221

REACTIONS (1)
  - Uveitis [Unknown]

NARRATIVE: CASE EVENT DATE: 20021219
